FAERS Safety Report 9152206 (Version 1)
Quarter: 2013Q1

REPORT INFORMATION
  Report Type: Spontaneous
  Country: PT (occurrence: PT)
  Receive Date: 20130308
  Receipt Date: 20130308
  Transmission Date: 20140127
  Serious: Yes (Other)
  Sender: FDA-Public Use
  Company Number: PT-ASTRAZENECA-2013SE13691

PATIENT
  Age: 48 Year
  Sex: Female

DRUGS (3)
  1. QUETIAPINE [Suspect]
     Route: 048
  2. PITAVASTATIN [Concomitant]
  3. ANTIRETROVIRAL THERAPY [Concomitant]

REACTIONS (1)
  - Pemphigoid [Recovering/Resolving]
